FAERS Safety Report 6700559-5 (Version None)
Quarter: 2010Q2

REPORT INFORMATION
  Report Type: 
  Country: None (occurrence: None)
  Receive Date: 20100428
  Receipt Date: 20100419
  Transmission Date: 20101027
  Serious: Yes (Life-Threatening)
  Sender: FDA-Public Use
  Company Number: B0648255A

PATIENT
  Sex: Male

DRUGS (9)
  1. ARIXTRA [Suspect]
     Indication: THROMBOSIS PROPHYLAXIS
     Dosage: 2.5MG PER DAY
     Route: 058
     Dates: start: 20090615, end: 20090903
  2. ALLOPURINOL [Concomitant]
     Dosage: 200MG IN THE MORNING
     Route: 065
  3. DAFALGAN [Concomitant]
     Dosage: 4G PER DAY
     Route: 065
  4. NOVONORM [Concomitant]
     Dosage: 1MG THREE TIMES PER DAY
     Route: 065
  5. TAMSULOSINE [Concomitant]
     Dosage: .4MG IN THE MORNING
     Route: 048
  6. PERMIXON [Concomitant]
     Dosage: 160MG TWICE PER DAY
     Route: 065
  7. SERESTA [Concomitant]
     Dosage: 5MG TWICE PER DAY
     Route: 048
  8. CRESTOR [Concomitant]
     Dosage: 5MG AT NIGHT
     Route: 048
  9. NEXIUM [Concomitant]
     Dosage: 20MG PER DAY
     Route: 048

REACTIONS (5)
  - ANAEMIA [None]
  - ASTHENIA [None]
  - GAIT DISTURBANCE [None]
  - INCISION SITE HAEMATOMA [None]
  - INCORRECT DRUG ADMINISTRATION DURATION [None]
